FAERS Safety Report 7690900-1 (Version None)
Quarter: 2011Q3

REPORT INFORMATION
  Report Type: 
  Country: None (occurrence: None)
  Receive Date: 20110818
  Receipt Date: 20110818
  Transmission Date: 20111222
  Serious: Yes (Life-Threatening, Other)
  Sender: FDA-Public Use
  Company Number: None

PATIENT
  Sex: Male
  Weight: 97.975 kg

DRUGS (1)
  1. TAPAZOLE [Suspect]

REACTIONS (3)
  - ARTHRALGIA [None]
  - JOINT SWELLING [None]
  - ERYTHEMA [None]
